FAERS Safety Report 5451927-3 (Version None)
Quarter: 2007Q3

REPORT INFORMATION
  Report Type: 
  Country: None (occurrence: None)
  Receive Date: 20070912
  Receipt Date: 20070902
  Transmission Date: 20080115
  Serious: Yes (Disabling, Other)
  Sender: FDA-Public Use
  Company Number: 2007SP016564

PATIENT
  Age: 74 Year
  Sex: Male
  Weight: 75 kg

DRUGS (4)
  1. PEG-INTRON [Suspect]
     Indication: HEPATITIS C
     Dosage: 100 MCG;QW;SC
     Route: 058
     Dates: start: 20061122, end: 20070213
  2. REBETOL [Suspect]
     Indication: HEPATITIS C
     Dosage: 1200 MG;QW;PO
     Route: 048
     Dates: start: 20061122, end: 20070213
  3. NORMITEN [Concomitant]
  4. COLCHICIN [Concomitant]

REACTIONS (5)
  - AMNESIA [None]
  - APATHY [None]
  - ASTHENIA [None]
  - DIZZINESS [None]
  - VERTIGO [None]
